FAERS Safety Report 5976561-8 (Version None)
Quarter: 2008Q4

REPORT INFORMATION
  Report Type: 
  Country: None (occurrence: None)
  Receive Date: 20081125
  Receipt Date: 20081114
  Transmission Date: 20090506
  Serious: Yes (Hospitalization, Other)
  Sender: FDA-Public Use
  Company Number: JPI-P-003674

PATIENT
  Age: 42 Year
  Sex: Female
  Weight: 52.1637 kg

DRUGS (6)
  1. XYREM [Suspect]
     Indication: NARCOLEPSY
     Dosage: (2.25 GM,D), ORAL;  6 GM (3 GM,2 IN 1 D), ORAL
     Route: 048
     Dates: start: 20080101
  2. XYREM [Suspect]
     Indication: NARCOLEPSY
     Dosage: (2.25 GM,D), ORAL;  6 GM (3 GM,2 IN 1 D), ORAL
     Route: 048
     Dates: start: 20080307
  3. MODAFINIL [Suspect]
     Indication: DRUG USE FOR UNKNOWN INDICATION
  4. FLUTICASONE W/SALMETEROL [Concomitant]
  5. ALBUTEROL (INHALANT) [Concomitant]
  6. UNSPECIFIED MEDICATIONS [Concomitant]

REACTIONS (15)
  - ABDOMINAL PAIN [None]
  - AUTOIMMUNE THYROIDITIS [None]
  - CHEST PAIN [None]
  - DYSPEPSIA [None]
  - DYSPHAGIA [None]
  - GASTRITIS [None]
  - GASTROOESOPHAGEAL REFLUX DISEASE [None]
  - GOITRE [None]
  - HIATUS HERNIA [None]
  - HYPOTHYROIDISM [None]
  - INFLUENZA LIKE ILLNESS [None]
  - LYMPH NODE PAIN [None]
  - LYMPHADENOPATHY [None]
  - NIGHT SWEATS [None]
  - WEIGHT DECREASED [None]
